FAERS Safety Report 9329100 (Version 1)
Quarter: 2013Q2

REPORT INFORMATION
  Report Type: Spontaneous
  Country: US (occurrence: US)
  Receive Date: 20130604
  Receipt Date: 20130604
  Transmission Date: 20140414
  Serious: Yes (Death)
  Sender: FDA-Public Use
  Company Number: US-GLAXOSMITHKLINE-A1025382A

PATIENT
  Age: 50 Year
  Sex: Male

DRUGS (2)
  1. HYCAMTIN [Suspect]
     Indication: BRONCHIAL CARCINOMA
     Dosage: 3MG SEE DOSAGE TEXT
     Route: 048
     Dates: start: 20130321, end: 20130514
  2. UNKNOWN [Concomitant]

REACTIONS (1)
  - Death [Fatal]
